FAERS Safety Report 6857676-9 (Version None)
Quarter: 2010Q3

REPORT INFORMATION
  Report Type: 
  Country: None (occurrence: None)
  Receive Date: 20100719
  Receipt Date: 20100708
  Transmission Date: 20110219
  Serious: Yes (Hospitalization)
  Sender: FDA-Public Use
  Company Number: ES-WATSON-2010-09355

PATIENT
  Age: 37 Year
  Sex: Male

DRUGS (1)
  1. GABAPENTIN [Suspect]
     Indication: PRODUCT USED FOR UNKNOWN INDICATION
     Dosage: 27 G, DAILY
     Route: 048

REACTIONS (2)
  - DRUG DEPENDENCE [None]
  - OVERDOSE [None]
